FAERS Safety Report 14327206 (Version 5)
Quarter: 2018Q1

REPORT INFORMATION
  Report Type: Report from Study
  Country: JP (occurrence: JP)
  Receive Date: 20171227
  Receipt Date: 20180122
  Transmission Date: 20180509
  Serious: Yes (Hospitalization)
  Sender: FDA-Public Use
  Company Number: JP-EISAI MEDICAL RESEARCH-EC-2017-034485

PATIENT
  Age: 57 Year
  Sex: Male
  Weight: 57 kg

DRUGS (15)
  1. LENVATINIB [Suspect]
     Active Substance: LENVATINIB
     Indication: HEPATOCELLULAR CARCINOMA
     Route: 048
     Dates: start: 20170228, end: 20171217
  2. NEXIUM [Concomitant]
     Active Substance: ESOMEPRAZOLE MAGNESIUM
  3. SODIUM CHLORIDE. [Concomitant]
     Active Substance: SODIUM CHLORIDE
  4. OXINORM (OXYCODONE HYDROCHLORIDE) [Concomitant]
     Active Substance: OXYCODONE HYDROCHLORIDE
  5. KERATINAMIN KOWA [Concomitant]
  6. POSTERISAN [Concomitant]
     Active Substance: LIDOCAINE
  7. PEMBROLIZUMAB. [Suspect]
     Active Substance: PEMBROLIZUMAB
     Indication: HEPATOCELLULAR CARCINOMA
     Route: 041
     Dates: start: 20170228, end: 20171127
  8. URSODEOXYCHOLIC ACID [Concomitant]
     Active Substance: URSODIOL
  9. OXYCODONE [Concomitant]
     Active Substance: OXYCODONE
  10. BARACLUDE [Concomitant]
     Active Substance: ENTECAVIR
  11. TANATRIL [Concomitant]
     Active Substance: IMIDAPRIL
  12. NAIXAN [Concomitant]
     Active Substance: NAPROXEN SODIUM
  13. REBAMIPIDE [Concomitant]
     Active Substance: REBAMIPIDE
  14. MAGNESIUM OXIDE. [Concomitant]
     Active Substance: MAGNESIUM OXIDE
  15. ADALAT CC [Concomitant]
     Active Substance: NIFEDIPINE

REACTIONS (3)
  - Blood lactate dehydrogenase increased [Recovering/Resolving]
  - Aspartate aminotransferase increased [Recovering/Resolving]
  - Alanine aminotransferase increased [Recovered/Resolved]

NARRATIVE: CASE EVENT DATE: 20171220
